FAERS Safety Report 12350052 (Version 1)
Quarter: 2016Q2

REPORT INFORMATION
  Report Type: Spontaneous
  Country: US (occurrence: None)
  Receive Date: 20160509
  Receipt Date: 20160509
  Transmission Date: 20160815
  Serious: Yes (Death)
  Sender: FDA-Public Use
  Company Number: None

PATIENT
  Age: 66 Year
  Sex: Male

DRUGS (21)
  1. SELENIUM [Concomitant]
     Active Substance: SELENIUM
  2. SIROLIMUS. [Concomitant]
     Active Substance: SIROLIMUS
  3. TYLENOL [Concomitant]
     Active Substance: ACETAMINOPHEN
  4. ACYCLOVIR. [Concomitant]
     Active Substance: ACYCLOVIR
  5. PRADAXA [Concomitant]
     Active Substance: DABIGATRAN ETEXILATE MESYLATE
  6. PREDNISONE. [Concomitant]
     Active Substance: PREDNISONE
  7. OMEPRAZOLE. [Concomitant]
     Active Substance: OMEPRAZOLE
  8. VITAMIN D3 [Concomitant]
     Active Substance: CHOLECALCIFEROL
  9. ATORVASTATIN [Concomitant]
     Active Substance: ATORVASTATIN
  10. OXYCODONE [Concomitant]
     Active Substance: OXYCODONE
  11. MULTI-VITE TAB PLUS [Concomitant]
  12. BACTRIM [Concomitant]
     Active Substance: SULFAMETHOXAZOLE\TRIMETHOPRIM
  13. BENADRYL ALG [Concomitant]
  14. LASIX [Concomitant]
     Active Substance: FUROSEMIDE
  15. FOLIC ACID. [Concomitant]
     Active Substance: FOLIC ACID
  16. EXJADE [Suspect]
     Active Substance: DEFERASIROX
     Indication: MINERAL DEFICIENCY
     Route: 048
     Dates: start: 20151103, end: 20160505
  17. ROPINIROLE. [Concomitant]
     Active Substance: ROPINIROLE
  18. FLECAINIDE [Concomitant]
     Active Substance: FLECAINIDE
  19. LEVOTHYROXIN [Concomitant]
     Active Substance: LEVOTHYROXINE
  20. MAGN OXIDE POW LIGHT [Concomitant]
  21. TYLENOL PM [Concomitant]
     Active Substance: ACETAMINOPHEN\DIPHENHYDRAMINE

REACTIONS (1)
  - Cardiac arrest [None]

NARRATIVE: CASE EVENT DATE: 20160505
